FAERS Safety Report 6936593-X (Version None)
Quarter: 2010Q3

REPORT INFORMATION
  Report Type: 
  Country: None (occurrence: None)
  Receive Date: 20100823
  Receipt Date: 20100812
  Transmission Date: 20110219
  Serious: Yes (Hospitalization)
  Sender: FDA-Public Use
  Company Number: IT-ROCHE-720800

PATIENT
  Sex: Male

DRUGS (11)
  1. VESANOID [Suspect]
     Route: 048
     Dates: start: 20100215, end: 20100306
  2. AUGMENTIN '125' [Concomitant]
     Route: 048
  3. SPORANOX [Concomitant]
     Route: 048
  4. ACICLIN [Concomitant]
     Route: 048
  5. DELTACORTENE [Concomitant]
     Route: 048
  6. APAROXAL [Concomitant]
     Route: 048
  7. ANAFRANIL [Concomitant]
     Route: 048
  8. LORAZEPAM [Concomitant]
     Route: 048
  9. ANTRA [Concomitant]
     Route: 042
  10. EPREX [Concomitant]
     Route: 058
  11. GENTALYN [Concomitant]
     Route: 042

REACTIONS (1)
  - ALVEOLITIS [None]
